FAERS Safety Report 10922372 (Version 1)
Quarter: 2015Q1

REPORT INFORMATION
  Report Type: Spontaneous
  Country: US (occurrence: US)
  Receive Date: 20150317
  Receipt Date: 20150317
  Transmission Date: 20150721
  Serious: No
  Sender: FDA-Public Use
  Company Number: US-BAUSCH-BL-2014-011211

PATIENT
  Age: 81 Year
  Sex: Male
  Weight: 68.1 kg

DRUGS (1)
  1. NEOMYCIN AND POLYMYXIN B SULFATES AND GRAMICIDIN [Suspect]
     Active Substance: GRAMICIDIN\NEOMYCIN SULFATE\POLYMYXIN B SULFATE
     Indication: PRODUCT USED FOR UNKNOWN INDICATION
     Route: 061
     Dates: start: 20141211, end: 20141218

REACTIONS (3)
  - Ocular hyperaemia [Recovering/Resolving]
  - Eye swelling [Recovering/Resolving]
  - Eyelid disorder [Recovering/Resolving]

NARRATIVE: CASE EVENT DATE: 201412
